FAERS Safety Report 12124987 (Version 2)
Quarter: 2016Q1

REPORT INFORMATION
  Report Type: Spontaneous
  Country: US (occurrence: US)
  Receive Date: 20160229
  Receipt Date: 20160229
  Transmission Date: 20160526
  Serious: No
  Sender: FDA-Public Use
  Company Number: US-ABBVIE-15P-163-1494827-00

PATIENT
  Sex: Male

DRUGS (1)
  1. ANDROGEL [Suspect]
     Active Substance: TESTOSTERONE
     Indication: ANDROGEN REPLACEMENT THERAPY
     Route: 061
     Dates: start: 20100930, end: 20130825

REACTIONS (7)
  - Social problem [Unknown]
  - Cardiovascular disorder [Unknown]
  - Economic problem [Unknown]
  - Anhedonia [Unknown]
  - Fear [Unknown]
  - Deep vein thrombosis [Unknown]
  - Physical disability [Unknown]

NARRATIVE: CASE EVENT DATE: 20110328
